FAERS Safety Report 9759596 (Version 2)
Quarter: 2015Q3

REPORT INFORMATION
  Report Type: Spontaneous
  Country: US (occurrence: US)
  Receive Date: 20131216
  Receipt Date: 20150806
  Transmission Date: 20151125
  Serious: No
  Sender: FDA-Public Use
  Company Number: US-GILEAD-2010-0028222

PATIENT
  Age: 45 Year
  Sex: Female

DRUGS (2)
  1. NEXIUM [Concomitant]
     Active Substance: ESOMEPRAZOLE MAGNESIUM
     Dates: start: 20100120
  2. LETAIRIS [Suspect]
     Active Substance: AMBRISENTAN
     Indication: PULMONARY ARTERIAL HYPERTENSION
     Route: 048
     Dates: start: 20100315

REACTIONS (1)
  - Headache [Not Recovered/Not Resolved]
